FAERS Safety Report 6059505-2 (Version None)
Quarter: 2009Q1

REPORT INFORMATION
  Report Type: 
  Country: None (occurrence: None)
  Receive Date: 20090127
  Receipt Date: 20090127
  Transmission Date: 20090719
  Serious: Yes (Other)
  Sender: FDA-Public Use
  Company Number: None

PATIENT
  Age: 82 Year
  Sex: Female
  Weight: 48.5349 kg

DRUGS (1)
  1. RALOXIFENE HCL [Suspect]
     Indication: BREAST CANCER
     Dosage: 60 MG DAILY PO
     Route: 048
     Dates: start: 20071001, end: 20081121

REACTIONS (1)
  - ENDOMETRIAL CANCER STAGE III [None]
